FAERS Safety Report 18600533 (Version 3)
Quarter: 2021Q2

REPORT INFORMATION
  Report Type: Spontaneous
  Country: CZ (occurrence: CZ)
  Receive Date: 20201210
  Receipt Date: 20210419
  Transmission Date: 20210717
  Serious: Yes (Hospitalization, Other)
  Sender: FDA-Public Use
  Company Number: CZ-MYLANLABS-2020M1099902

PATIENT
  Age: 40 Year
  Sex: Male

DRUGS (32)
  1. OLANZAPINE. [Suspect]
     Active Substance: OLANZAPINE
     Indication: SCHIZOPHRENIA
     Dosage: 10 MILLIGRAM DAILY; 10 MG
     Route: 065
  2. OLANZAPINE. [Suspect]
     Active Substance: OLANZAPINE
     Dosage: 5 MILLIGRAM
  3. OLANZAPINE. [Suspect]
     Active Substance: OLANZAPINE
     Dosage: 20 MILLIGRAM
     Route: 065
     Dates: start: 202006
  4. OLANZAPINE. [Suspect]
     Active Substance: OLANZAPINE
     Dosage: 10 MILLIGRAM
     Route: 065
     Dates: start: 2008, end: 2013
  5. REPAGLINIDE. [Concomitant]
     Active Substance: REPAGLINIDE
     Indication: TYPE 2 DIABETES MELLITUS
     Dosage: UNK
     Route: 048
     Dates: end: 2017
  6. CARIPRAZINE [Concomitant]
     Active Substance: CARIPRAZINE
     Indication: SCHIZOPHRENIA
     Dosage: 4.5 MILLIGRAM
     Route: 065
     Dates: start: 201909
  7. CLONAZEPAM. [Concomitant]
     Active Substance: CLONAZEPAM
     Indication: ANXIETY
     Dosage: 5 MILLIGRAM
  8. CITALOPRAM [Concomitant]
     Active Substance: CITALOPRAM HYDROBROMIDE
     Indication: ANXIETY
     Dosage: 20 MILLIGRAM
     Route: 065
  9. OLANZAPINE. [Suspect]
     Active Substance: OLANZAPINE
     Dosage: 15 MILLIGRAM
  10. PREGABALIN. [Concomitant]
     Active Substance: PREGABALIN
     Indication: ANXIETY
     Dosage: 600 MILLIGRAM, QD
  11. PERINDOPRIL [Concomitant]
     Active Substance: PERINDOPRIL
     Indication: ESSENTIAL HYPERTENSION
     Dosage: 4 MILLIGRAM
     Route: 065
  12. LEVOTHYROXINE. [Concomitant]
     Active Substance: LEVOTHYROXINE
     Indication: HYPOTHYROIDISM
     Dosage: 75 MICROGRAM
     Route: 065
  13. INSULIN DEGLUDEC W/LIRAGLUTIDE [Concomitant]
     Indication: TYPE 2 DIABETES MELLITUS
     Dosage: UNK 40 UNITS IN THE EVENING
     Route: 065
  14. ESCITALOPRAM [Concomitant]
     Active Substance: ESCITALOPRAM OXALATE
     Indication: PRODUCT USED FOR UNKNOWN INDICATION
     Dosage: 20 MILLIGRAM, QD
  15. OLANZAPINE. [Suspect]
     Active Substance: OLANZAPINE
     Dosage: 15 MILLIGRAM
     Route: 065
     Dates: start: 2013
  16. RISPERIDONE. [Concomitant]
     Active Substance: RISPERIDONE
     Dosage: UNK
     Route: 065
     Dates: start: 2004
  17. CARIPRAZINE [Concomitant]
     Active Substance: CARIPRAZINE
     Dosage: UNK
     Route: 065
  18. FENOFIBRATE. [Concomitant]
     Active Substance: FENOFIBRATE
     Indication: HYPERTRIGLYCERIDAEMIA
     Dosage: 215 MILLIGRAM
     Route: 065
  19. CARIPRAZINE [Concomitant]
     Active Substance: CARIPRAZINE
     Dosage: 4.5 MILLIGRAM
     Route: 065
     Dates: start: 202006
  20. PREGABALIN. [Concomitant]
     Active Substance: PREGABALIN
     Indication: DRUG THERAPY
     Dosage: 300 MILLIGRAM
     Dates: start: 202006
  21. METFORMIN [Concomitant]
     Active Substance: METFORMIN HYDROCHLORIDE
     Indication: TYPE 2 DIABETES MELLITUS
     Dosage: 2000 MILLIGRAM
     Route: 065
  22. VORTIOXETINE. [Concomitant]
     Active Substance: VORTIOXETINE
     Indication: ANTIDEPRESSANT THERAPY
     Dosage: 10 MILLIGRAM
  23. ARIPIPRAZOL [Concomitant]
     Active Substance: ARIPIPRAZOLE
     Indication: SCHIZOPHRENIA
     Dosage: 15 MILLIGRAM, QD
     Route: 065
  24. OLANZAPINE. [Suspect]
     Active Substance: OLANZAPINE
     Dosage: 20 MILLIGRAM
     Dates: start: 2020
  25. AGOMELATINE [Concomitant]
     Active Substance: AGOMELATINE
     Indication: SCHIZOPHRENIA
     Dosage: 50 MILLIGRAM
     Dates: start: 202006
  26. QUETIAPINE. [Concomitant]
     Active Substance: QUETIAPINE
     Dosage: 600 UNK
     Dates: start: 2007
  27. PERINDOPRIL [Concomitant]
     Active Substance: PERINDOPRIL
     Indication: HYPERTENSION
     Dosage: 4 MILLIGRAM DAILY; 4 MG
     Route: 065
  28. RISPERIDONE. [Concomitant]
     Active Substance: RISPERIDONE
     Indication: SCHIZOPHRENIA
     Dosage: FIRST ORALLY, LATER SWITCHED TO LONG?LASTING INJECTION FORM
     Route: 048
     Dates: start: 2004
  29. BETAXOLOL. [Concomitant]
     Active Substance: BETAXOLOL
     Indication: ESSENTIAL HYPERTENSION
     Dosage: 10 MILLIGRAM
     Route: 065
  30. QUETIAPINE. [Concomitant]
     Active Substance: QUETIAPINE
     Indication: SCHIZOPHRENIA
     Dosage: 200 MILLIGRAM DAILY; 200 MG INCREASED TO 600 MG IN 2007, LATED RISCONTINUED
     Route: 065
  31. PANTOPRAZOLE [Concomitant]
     Active Substance: PANTOPRAZOLE
     Indication: DRUG THERAPY
     Dosage: 80 MILLIGRAM
     Route: 065
  32. TESTOSTERONE. [Concomitant]
     Active Substance: TESTOSTERONE
     Indication: DRUG THERAPY
     Dosage: ONCE EVERY 14 DAYS
     Route: 065

REACTIONS (10)
  - Schizophrenia [Recovering/Resolving]
  - Metabolic disorder [Recovering/Resolving]
  - Depressive symptom [Unknown]
  - Gynaecomastia [Unknown]
  - Drug ineffective [Unknown]
  - Hyperprolactinaemia [Unknown]
  - Insomnia [Recovered/Resolved]
  - Pancreatitis acute [Recovered/Resolved]
  - Mental disorder [Unknown]
  - Metabolic syndrome [Unknown]

NARRATIVE: CASE EVENT DATE: 2007
